FAERS Safety Report 4382548-1 (Version None)
Quarter: 2004Q2

REPORT INFORMATION
  Report Type: 
  Country: None (occurrence: None)
  Receive Date: 20040617
  Receipt Date: 20040615
  Transmission Date: 20050107
  Serious: Yes (Hospitalization)
  Sender: FDA-Public Use
  Company Number: LTI2004A00136

PATIENT
  Age: 73 Year
  Sex: Male

DRUGS (1)
  1. ENANTONE LP (3M) (LEUPROLIDE ACETATE) (11.25 MILLIGRAM, INJECTION) [Suspect]
     Indication: PROSTATE CANCER
     Dosage: 11.25 MG, 1 IN 3 M, SUBCUTANEOUS
     Route: 058
     Dates: start: 20020924

REACTIONS (2)
  - HIP ARTHROPLASTY [None]
  - LOCALISED OSTEOARTHRITIS [None]
